FAERS Safety Report 5661568-0 (Version None)
Quarter: 2008Q1

REPORT INFORMATION
  Report Type: 
  Country: None (occurrence: None)
  Receive Date: 20080312
  Receipt Date: 20080229
  Transmission Date: 20080703
  Serious: Yes (Death, Other)
  Sender: FDA-Public Use
  Company Number: PHBS2008DE02909

PATIENT
  Age: 19 Year
  Sex: Female

DRUGS (3)
  1. SANDIMMUNE [Suspect]
     Indication: LUNG TRANSPLANT
  2. CELLCEPT [Concomitant]
     Indication: LUNG TRANSPLANT
  3. DECORTIN-H [Concomitant]
     Indication: LUNG TRANSPLANT

REACTIONS (10)
  - ARTERIOVENOUS FISTULA [None]
  - BURKHOLDERIA CEPACIA INFECTION [None]
  - CATHETER SEPSIS [None]
  - CYTOMEGALOVIRUS INFECTION [None]
  - ENTEROCOCCAL INFECTION [None]
  - LUNG INFECTION [None]
  - PSEUDOMONAS INFECTION [None]
  - PULMONARY HAEMORRHAGE [None]
  - PULMONARY NECROSIS [None]
  - RESPIRATORY MONILIASIS [None]
